FAERS Safety Report 7546041-7 (Version None)
Quarter: 2011Q2

REPORT INFORMATION
  Report Type: 
  Country: None (occurrence: None)
  Receive Date: 20110614
  Receipt Date: 20110609
  Transmission Date: 20111010
  Serious: Yes (Death, Life-Threatening, Hospitalization, Other)
  Sender: FDA-Public Use
  Company Number: US-ACTELION-A-US2011-48935

PATIENT

DRUGS (4)
  1. EPOPROSTENOL SODIUM [Suspect]
     Indication: PULMONARY ARTERIAL HYPERTENSION
     Dosage: 21.5 NG/KG, PER MIN
     Route: 042
     Dates: start: 20100517, end: 20110516
  2. COUMADIN [Concomitant]
  3. AMBRISENTAN [Concomitant]
  4. ADCIRCA [Concomitant]

REACTIONS (2)
  - DEATH [None]
  - THROMBOCYTOPENIA [None]
